FAERS Safety Report 17111634 (Version 1)
Quarter: 2019Q4

REPORT INFORMATION
  Report Type: Report from Study
  Country: DE (occurrence: DE)
  Receive Date: 20191204
  Receipt Date: 20191204
  Transmission Date: 20200122
  Serious: Yes (Death, Hospitalization)
  Sender: FDA-Public Use
  Company Number: DE-ROCHE-2481950

PATIENT
  Age: 65 Year
  Sex: Male
  Weight: 78 kg

DRUGS (9)
  1. BELOC ZOK MITE [Concomitant]
     Active Substance: METOPROLOL SUCCINATE
     Route: 065
     Dates: start: 20130107, end: 20130114
  2. PANTOPRAZOL [PANTOPRAZOLE] [Concomitant]
     Active Substance: PANTOPRAZOLE
     Route: 065
     Dates: start: 201301
  3. CALCIUM [Concomitant]
     Active Substance: CALCIUM
     Route: 065
     Dates: start: 201301
  4. NOVALGIN (METAMIZOLE SODIUM) [Concomitant]
     Active Substance: METAMIZOLE SODIUM
     Route: 065
     Dates: start: 20130115
  5. CAPECITABINE. [Suspect]
     Active Substance: CAPECITABINE
     Indication: COLORECTAL CANCER METASTATIC
     Dosage: DATE OF LAST DOSE PRIOR TO SAE: 30/DEC/2012
     Route: 048
     Dates: start: 20121217
  6. IBUPROFEN. [Concomitant]
     Active Substance: IBUPROFEN
     Route: 065
     Dates: start: 201301
  7. IRINOTECAN [Suspect]
     Active Substance: IRINOTECAN
     Indication: COLORECTAL CANCER METASTATIC
     Dosage: DATE OF LAST DOSE PRIOR TO SAE: 17/DEC/2012
     Route: 042
     Dates: start: 20121217
  8. BEVACIZUMAB. [Suspect]
     Active Substance: BEVACIZUMAB
     Indication: COLORECTAL CANCER METASTATIC
     Dosage: DATE OF LAST DOSE PRIOR TO SAE: 17/DEC/2012
     Route: 042
     Dates: start: 20121217
  9. SAROTEN [Concomitant]
     Active Substance: AMITRIPTYLINE
     Route: 065
     Dates: start: 201301

REACTIONS (2)
  - Subileus [Recovered/Resolved]
  - Anastomotic complication [Fatal]

NARRATIVE: CASE EVENT DATE: 20130104
